FAERS Safety Report 7423078-X (Version None)
Quarter: 2011Q2

REPORT INFORMATION
  Report Type: 
  Country: None (occurrence: None)
  Receive Date: 20110419
  Receipt Date: 20110413
  Transmission Date: 20111010
  Serious: Yes (Hospitalization)
  Sender: FDA-Public Use
  Company Number: CN-ASTRAZENECA-2011SE21198

PATIENT
  Age: 58 Year
  Sex: Male

DRUGS (3)
  1. FELODIPINE [Suspect]
     Indication: ESSENTIAL HYPERTENSION
     Route: 048
  2. ATORVASTATIN CALCIUM [Concomitant]
  3. VITAMIN E [Concomitant]

REACTIONS (1)
  - HYPOKALAEMIA [None]
